FAERS Safety Report 8545766-4 (Version None)
Quarter: 2012Q3

REPORT INFORMATION
  Report Type: 
  Country: None (occurrence: None)
  Receive Date: 20120727
  Receipt Date: 20120724
  Transmission Date: 20120928
  Serious: Yes (Hospitalization)
  Sender: FDA-Public Use
  Company Number: JP-009507513-1207JPN008715

PATIENT

DRUGS (10)
  1. TELAVIC [Suspect]
     Indication: HEPATITIS C
     Route: 048
     Dates: start: 20120604, end: 20120608
  2. URSO 250 [Concomitant]
     Indication: HEPATITIS C
     Route: 048
     Dates: start: 20120609, end: 20120622
  3. ADALAT [Concomitant]
     Route: 048
  4. PEG-INTRON [Suspect]
     Indication: HEPATITIS C
     Dosage: 80 MCGS/WEEK
     Route: 058
     Dates: start: 20120604, end: 20120604
  5. [THERAPY UNSPECIFIED] [Concomitant]
     Indication: PROPHYLAXIS
     Route: 048
     Dates: start: 20120604, end: 20120622
  6. TALION (BEPOTASTINE BESYLATE) [Concomitant]
     Indication: PROPHYLAXIS
     Route: 048
     Dates: start: 20120604, end: 20120622
  7. DEPAS [Concomitant]
     Indication: INSOMNIA
     Route: 048
     Dates: end: 20120622
  8. CANDESARTAN CILEXETIL [Concomitant]
     Indication: HYPERTENSION
     Route: 048
     Dates: start: 20120604, end: 20120622
  9. ENALAPRIL MALEATE [Concomitant]
     Route: 048
  10. REBETOL [Suspect]
     Indication: HEPATITIS C
     Route: 048
     Dates: start: 20120604, end: 20120608

REACTIONS (2)
  - RENAL IMPAIRMENT [None]
  - HYPERURICAEMIA [None]
